FAERS Safety Report 13275715 (Version 1)
Quarter: 2017Q1

REPORT INFORMATION
  Report Type: Spontaneous
  Country: US (occurrence: US)
  Receive Date: 20170228
  Receipt Date: 20170228
  Transmission Date: 20170428
  Serious: No
  Sender: FDA-Public Use
  Company Number: US-ASTRAZENECA-2017SE18489

PATIENT
  Age: 981 Month
  Sex: Female
  Weight: 68 kg

DRUGS (2)
  1. SYMBICORT [Suspect]
     Active Substance: BUDESONIDE\FORMOTEROL FUMARATE DIHYDRATE
     Indication: CHRONIC OBSTRUCTIVE PULMONARY DISEASE
     Dosage: 160/4.5 MCG 2 PUFFS, TWICE PER DAY
     Route: 055
  2. OXYGEN. [Concomitant]
     Active Substance: OXYGEN
     Indication: CHRONIC OBSTRUCTIVE PULMONARY DISEASE
     Route: 045

REACTIONS (5)
  - Incorrect dose administered [Unknown]
  - Intentional product misuse [Unknown]
  - Visual acuity reduced [Unknown]
  - Product quality issue [Unknown]
  - Memory impairment [Unknown]

NARRATIVE: CASE EVENT DATE: 201702
